FAERS Safety Report 12095762 (Version 1)
Quarter: 2016Q1

REPORT INFORMATION
  Report Type: Spontaneous
  Country: TR (occurrence: TR)
  Receive Date: 20160220
  Receipt Date: 20160220
  Transmission Date: 20160526
  Serious: Yes (Other)
  Sender: FDA-Public Use
  Company Number: TR-CIPLA LTD.-2016TR01320

PATIENT

DRUGS (4)
  1. BICALUTAMIDE. [Suspect]
     Active Substance: BICALUTAMIDE
     Indication: TESTOTOXICOSIS
     Dosage: 50 MG, QD
     Route: 065
  2. BICALUTAMIDE. [Suspect]
     Active Substance: BICALUTAMIDE
     Indication: PRECOCIOUS PUBERTY
     Dosage: UNK
  3. ANASTROZOLE. [Suspect]
     Active Substance: ANASTROZOLE
     Indication: PRECOCIOUS PUBERTY
     Dosage: 1 MG, QD
     Route: 065
  4. ANASTROZOLE. [Suspect]
     Active Substance: ANASTROZOLE
     Indication: TESTOTOXICOSIS
     Dosage: 2 MG, QD
     Route: 065

REACTIONS (1)
  - Drug ineffective [Recovering/Resolving]
